FAERS Safety Report 13340453 (Version 3)
Quarter: 2017Q2

REPORT INFORMATION
  Report Type: Spontaneous
  Country: US (occurrence: US)
  Receive Date: 20170316
  Receipt Date: 20170505
  Transmission Date: 20170830
  Serious: No
  Sender: FDA-Public Use
  Company Number: US-PFIZER INC-2017106874

PATIENT
  Age: 78 Year
  Sex: Female

DRUGS (3)
  1. IBRANCE [Suspect]
     Active Substance: PALBOCICLIB
     Dosage: 100 MG, CYCLIC, (EVERY DAY FOR 21 DAYS THEN TAKE 7 DAYS OFF )
     Route: 048
     Dates: start: 20170308
  2. LETROZOLE. [Suspect]
     Active Substance: LETROZOLE
     Dosage: UNK
  3. IBRANCE [Suspect]
     Active Substance: PALBOCICLIB
     Indication: BREAST CANCER FEMALE
     Dosage: 100 MG, CYCLIC, (21 DAYS ON AND 7 OFF)
     Route: 048

REACTIONS (6)
  - Pruritus [Recovering/Resolving]
  - Tremor [Unknown]
  - Headache [Unknown]
  - Nausea [Recovering/Resolving]
  - Vomiting [Unknown]
  - Asthenia [Unknown]

NARRATIVE: CASE EVENT DATE: 20170401
